FAERS Safety Report 17194175 (Version 2)
Quarter: 2021Q4

REPORT INFORMATION
  Report Type: Report from Study
  Country: DE (occurrence: DE)
  Receive Date: 20191224
  Receipt Date: 20211227
  Transmission Date: 20220303
  Serious: Yes (Hospitalization)
  Sender: FDA-Public Use
  Company Number: DE-SA-2019SA346241

PATIENT
  Age: 67 Year
  Sex: Male
  Weight: 80 kg

DRUGS (10)
  1. FLUOROURACIL [Suspect]
     Active Substance: FLUOROURACIL
     Indication: Rectal cancer
     Dosage: 5520 MG, QCY
     Route: 042
     Dates: start: 20190122, end: 20190122
  2. FLUOROURACIL [Suspect]
     Active Substance: FLUOROURACIL
     Dosage: UNK UNK, QCY
     Route: 042
     Dates: start: 20181016, end: 20181016
  3. OXALIPLATIN [Suspect]
     Active Substance: OXALIPLATIN
     Indication: Rectal cancer
     Dosage: 168 MG, QCY
     Route: 042
     Dates: start: 20190122, end: 20190122
  4. OXALIPLATIN [Suspect]
     Active Substance: OXALIPLATIN
     Dosage: UNK UNK, QCY
     Route: 042
     Dates: start: 20181016, end: 20181016
  5. LEUCOVORIN [Suspect]
     Active Substance: LEUCOVORIN
     Indication: Rectal cancer
     Dosage: 690 MG, QCY
     Route: 042
     Dates: start: 20190122, end: 20190122
  6. LEUCOVORIN [Suspect]
     Active Substance: LEUCOVORIN
     Dosage: UNK UNK, QCY
     Route: 042
     Dates: start: 20181016, end: 20181016
  7. AFLIBERCEPT [Suspect]
     Active Substance: AFLIBERCEPT
  8. AFLIBERCEPT [Suspect]
     Active Substance: AFLIBERCEPT
  9. INVESTIGATIONAL PRODUCT [Suspect]
     Active Substance: INVESTIGATIONAL PRODUCT
  10. PLACEBO [Suspect]
     Active Substance: UNSPECIFIED INGREDIENT

REACTIONS (1)
  - White blood cell count decreased [Recovered/Resolved]

NARRATIVE: CASE EVENT DATE: 20190131
